FAERS Safety Report 7100601-6 (Version None)
Quarter: 2010Q4

REPORT INFORMATION
  Report Type: 
  Country: None (occurrence: None)
  Receive Date: 20101113
  Receipt Date: 20100404
  Transmission Date: 20110411
  Serious: No
  Sender: FDA-Public Use
  Company Number: US-ALLERGAN-1001790US

PATIENT
  Sex: Female

DRUGS (2)
  1. BOTOXA? [Suspect]
     Indication: HYPERHIDROSIS
     Dosage: 87 UNITS, SINGLE
     Dates: start: 20100201, end: 20100201
  2. BOTOXA? [Suspect]
     Indication: SKIN WRINKLING

REACTIONS (13)
  - ASTHENIA [None]
  - CHEST PAIN [None]
  - DIZZINESS [None]
  - FATIGUE [None]
  - HEADACHE [None]
  - HOT FLUSH [None]
  - IMPAIRED DRIVING ABILITY [None]
  - INFLUENZA [None]
  - NAUSEA [None]
  - PALPITATIONS [None]
  - PANIC ATTACK [None]
  - VERTIGO [None]
  - VISUAL IMPAIRMENT [None]
